FAERS Safety Report 8529399-1 (Version None)
Quarter: 2012Q2

REPORT INFORMATION
  Report Type: 
  Country: None (occurrence: None)
  Receive Date: 20120409
  Receipt Date: 20110803
  Transmission Date: 20120825
  Serious: Yes (Death)
  Sender: FDA-Public Use
  Company Number: 2011-322

PATIENT
  Age: 46 Year
  Sex: Male

DRUGS (11)
  1. GLIPIZIDE [Concomitant]
  2. DIOVAN HCT [Concomitant]
  3. FAZACLO ODT [Suspect]
     Dosage: 400 MG QD, ORAL
     Route: 048
     Dates: start: 20101012, end: 20110603
  4. ZOLOFT [Concomitant]
  5. ZOCOR [Concomitant]
  6. ACTOS [Concomitant]
  7. METFFORMIN HYDROCHLORIDE [Concomitant]
  8. REGULAR INSULIN NOVO NORDISK (INSULIN PORCINE) [Concomitant]
  9. PRILOSEC [Concomitant]
  10. ALBUTEROL SULFATE [Concomitant]
  11. ZIPRASIDONE HYDROCHLORIDE (GEODON) [Concomitant]

REACTIONS (1)
  - MYOCARDIAL INFARCTION [None]
